FAERS Safety Report 20482020 (Version 1)
Quarter: 2022Q1

REPORT INFORMATION
  Report Type: Spontaneous
  Country: NL (occurrence: NL)
  Receive Date: 20220216
  Receipt Date: 20220216
  Transmission Date: 20220423
  Serious: Yes (Death, Hospitalization, Other)
  Sender: FDA-Public Use
  Company Number: NL-JAZZ-2021-NL-010270

PATIENT
  Age: 53 Year
  Sex: Male

DRUGS (10)
  1. ZEPZELCA [Suspect]
     Active Substance: LURBINECTEDIN
     Indication: Small cell lung cancer
     Dosage: 2 COURSES
     Route: 042
     Dates: start: 20210428, end: 20210517
  2. CODEINE [Concomitant]
     Active Substance: CODEINE
  3. BUDESONIDE [Concomitant]
     Active Substance: BUDESONIDE
  4. ALBUTEROL [Concomitant]
     Active Substance: ALBUTEROL
  5. OXYCODONE [Concomitant]
     Active Substance: OXYCODONE
  6. MOVICOLON [Concomitant]
     Active Substance: POLYETHYLENE GLYCOL 3350\POTASSIUM CHLORIDE\SODIUM BICARBONATE\SODIUM CHLORIDE
  7. ACETAMINOPHEN [Concomitant]
     Active Substance: ACETAMINOPHEN
  8. DICLOFENAC [Concomitant]
     Active Substance: DICLOFENAC
  9. PANTOPRAZOLE [Concomitant]
     Active Substance: PANTOPRAZOLE
  10. HUMAN RED BLOOD CELL [Concomitant]
     Active Substance: HUMAN RED BLOOD CELL

REACTIONS (3)
  - Sepsis [Fatal]
  - Pyrexia [Unknown]
  - Vomiting [Unknown]
